FAERS Safety Report 10378082 (Version 2)
Quarter: 2014Q3

REPORT INFORMATION
  Report Type: Report from Study
  Country: CA (occurrence: CA)
  Receive Date: 20140812
  Receipt Date: 20140916
  Transmission Date: 20150326
  Serious: Yes (Other)
  Sender: FDA-Public Use
  Company Number: CA-ABBVIE-14K-028-1268950-00

PATIENT
  Age: 16 Year
  Sex: Female
  Weight: 43.8 kg

DRUGS (3)
  1. PREDNISONE. [Concomitant]
     Active Substance: PREDNISONE
     Indication: PRODUCT USED FOR UNKNOWN INDICATION
  2. HUMIRA [Suspect]
     Active Substance: ADALIMUMAB
     Route: 058
     Dates: start: 20140811
  3. HUMIRA [Suspect]
     Active Substance: ADALIMUMAB
     Indication: CROHN^S DISEASE
     Route: 058
     Dates: start: 20120921, end: 201407

REACTIONS (8)
  - Therapy responder [Unknown]
  - Colectomy [Unknown]
  - Peritonitis [Unknown]
  - Anastomotic stenosis [Unknown]
  - Colostomy closure [Unknown]
  - Procedural intestinal perforation [Unknown]
  - Intestinal perforation [Unknown]
  - Abdominal pain [Unknown]

NARRATIVE: CASE EVENT DATE: 20140707
